FAERS Safety Report 4322772-7 (Version None)
Quarter: 2004Q1

REPORT INFORMATION
  Report Type: 
  Country: None (occurrence: None)
  Receive Date: 20040324
  Receipt Date: 20010704
  Transmission Date: 20041129
  Serious: Yes (Hospitalization)
  Sender: FDA-Public Use
  Company Number: AU-ROCHE-263648

PATIENT
  Age: 46 Year
  Sex: Female
  Weight: 82.6 kg

DRUGS (5)
  1. PEG-INTERFERON ALFA 2A (RO 25-8310) [Suspect]
     Route: 058
     Dates: start: 20010502, end: 20010701
  2. PEG-INTERFERON ALFA 2A (RO 25-8310) [Suspect]
     Route: 058
     Dates: start: 20010712
  3. RIBAVIRIN [Suspect]
     Route: 048
     Dates: start: 20010502, end: 20010701
  4. RIBAVIRIN [Suspect]
     Route: 048
     Dates: start: 20010712
  5. CECLOR [Concomitant]
     Dates: start: 20010621, end: 20010702

REACTIONS (1)
  - BREAST ABSCESS [None]
